FAERS Safety Report 24965488 (Version 1)
Quarter: 2025Q1

REPORT INFORMATION
  Report Type: Spontaneous
  Country: IT (occurrence: IT)
  Receive Date: 20250213
  Receipt Date: 20250213
  Transmission Date: 20250409
  Serious: Yes (Death, Other)
  Sender: ELI LILLY AND COMPANY
  Company Number: IT-ELI_LILLY_AND_COMPANY-IT202502001843

PATIENT
  Age: 59 Year
  Sex: Female

DRUGS (6)
  1. SELPERCATINIB [Suspect]
     Active Substance: SELPERCATINIB
     Indication: Lung adenocarcinoma stage IV
     Dosage: 160 MG, DAILY
     Route: 065
     Dates: start: 202204
  2. SELPERCATINIB [Suspect]
     Active Substance: SELPERCATINIB
     Dosage: 80 UNK
     Route: 065
  3. SELPERCATINIB [Suspect]
     Active Substance: SELPERCATINIB
     Dosage: 160 UNK
     Route: 065
  4. PEMETREXED [Suspect]
     Active Substance: PEMETREXED
     Indication: Lung adenocarcinoma stage IV
     Route: 065
     Dates: start: 202201
  5. CISPLATIN [Suspect]
     Active Substance: CISPLATIN
     Indication: Lung adenocarcinoma stage IV
     Route: 065
     Dates: start: 202201
  6. PEMBROLIZUMAB [Suspect]
     Active Substance: PEMBROLIZUMAB
     Indication: Lung adenocarcinoma stage IV
     Route: 065
     Dates: start: 202201

REACTIONS (12)
  - Metastases to peritoneum [Fatal]
  - Hepatic failure [Fatal]
  - Malignant neoplasm progression [Fatal]
  - Anaemia [Unknown]
  - Thrombocytopenia [Unknown]
  - Gastrointestinal toxicity [Unknown]
  - Ascites [Recovering/Resolving]
  - Condition aggravated [Unknown]
  - Diarrhoea [Unknown]
  - Oedema peripheral [Unknown]
  - Alanine aminotransferase increased [Recovering/Resolving]
  - Aspartate aminotransferase increased [Recovering/Resolving]
